FAERS Safety Report 5918977-1 (Version None)
Quarter: 2008Q4

REPORT INFORMATION
  Report Type: 
  Country: None (occurrence: None)
  Receive Date: 20081014
  Receipt Date: 20081014
  Transmission Date: 20090506
  Serious: No
  Sender: FDA-Public Use
  Company Number: None

PATIENT
  Age: 58 Year
  Sex: Female
  Weight: 79.8331 kg

DRUGS (1)
  1. CITALOPRAM HYDROBROMIDE [Suspect]
     Indication: DEPRESSION
     Dosage: 1 TABLET AM ONCE PO
     Route: 048
     Dates: start: 20080826, end: 20080925

REACTIONS (4)
  - CREPITATIONS [None]
  - JAW DISORDER [None]
  - PAIN IN JAW [None]
  - TRISMUS [None]
